FAERS Safety Report 9312179 (Version 2)
Quarter: 2013Q2

REPORT INFORMATION
  Report Type: Spontaneous
  Country: US (occurrence: US)
  Receive Date: 20130528
  Receipt Date: 20130617
  Transmission Date: 20140414
  Serious: No
  Sender: FDA-Public Use
  Company Number: US-PFIZER INC-2013162257

PATIENT
  Age: 92 Year
  Sex: Female

DRUGS (2)
  1. XALKORI [Suspect]
     Indication: ACUTE LYMPHOCYTIC LEUKAEMIA
     Dosage: 250 MG, 2X/DAY
     Route: 048
     Dates: start: 201212
  2. XALKORI [Suspect]
     Indication: LUNG NEOPLASM MALIGNANT

REACTIONS (1)
  - Malaise [Unknown]
